FAERS Safety Report 4848126-2 (Version None)
Quarter: 2005Q4

REPORT INFORMATION
  Report Type: 
  Country: None (occurrence: None)
  Receive Date: 20051208
  Receipt Date: 20051206
  Transmission Date: 20060501
  Serious: Yes (Hospitalization)
  Sender: FDA-Public Use
  Company Number: FR-AVENTIS-200514000FR

PATIENT
  Age: 44 Year
  Sex: Male

DRUGS (6)
  1. LOVENOX [Suspect]
     Indication: THROMBOSIS PROPHYLAXIS
     Route: 058
     Dates: start: 20050926, end: 20051024
  2. ROHYPNOL [Concomitant]
     Indication: SLEEP DISORDER
     Route: 048
  3. EQUANIL [Concomitant]
     Indication: ANXIETY
     Route: 048
  4. MOPRAL [Concomitant]
     Indication: GASTRIC DISORDER
     Route: 048
  5. VITAMIN B1 AND B6 [Concomitant]
     Indication: MALAISE
     Route: 048
  6. VITAMIN B1 AND B6 [Concomitant]
     Indication: FATIGUE
     Route: 048

REACTIONS (1)
  - THROMBOCYTHAEMIA [None]
